FAERS Safety Report 11167111 (Version 1)
Quarter: 2015Q2

REPORT INFORMATION
  Report Type: Spontaneous
  Country: US (occurrence: None)
  Receive Date: 20150515
  Receipt Date: 20150515
  Transmission Date: 20150821
  Serious: Yes (Other)
  Sender: FDA-Public Use
  Company Number: 2015007536

PATIENT
  Sex: Male

DRUGS (1)
  1. CIMZIA [Suspect]
     Active Substance: CERTOLIZUMAB PEGOL
     Indication: PRODUCT USED FOR UNKNOWN INDICATION
     Dosage: EV 4 WEEKS (EXPIRY DATE: 28-FEB-2014)
     Route: 058

REACTIONS (2)
  - Herpes zoster [None]
  - Blister [None]

NARRATIVE: CASE EVENT DATE: 2013
